FAERS Safety Report 22035368 (Version 1)
Quarter: 2023Q1

REPORT INFORMATION
  Report Type: Spontaneous
  Country: US (occurrence: None)
  Receive Date: 20230223
  Receipt Date: 20230223
  Transmission Date: 20230418
  Serious: Yes (Other)
  Sender: FDA-Public Use
  Company Number: None

PATIENT
  Age: 20 Year
  Sex: Male
  Weight: 112.5 kg

DRUGS (7)
  1. CAPLYTA [Suspect]
     Active Substance: LUMATEPERONE
     Indication: Bipolar disorder
     Dosage: OTHER QUANTITY : 1 CAPSULE(S);?FREQUENCY : AT BEDTIME;?
     Route: 048
  2. VYVANSE [Concomitant]
     Active Substance: LISDEXAMFETAMINE DIMESYLATE
  3. LORAZEPAM [Concomitant]
     Active Substance: LORAZEPAM
  4. RISPERIDONE [Concomitant]
     Active Substance: RISPERIDONE
  5. ADVAIR DISKUS [Concomitant]
     Active Substance: FLUTICASONE PROPIONATE\SALMETEROL XINAFOATE
  6. AJOVY [Concomitant]
     Active Substance: FREMANEZUMAB-VFRM
  7. UBRELVY [Concomitant]
     Active Substance: UBROGEPANT

REACTIONS (4)
  - Dizziness [None]
  - Gait disturbance [None]
  - Migraine [None]
  - Sedation [None]

NARRATIVE: CASE EVENT DATE: 20221122
